FAERS Safety Report 8126142-5 (Version None)
Quarter: 2012Q1

REPORT INFORMATION
  Report Type: 
  Country: None (occurrence: None)
  Receive Date: 20120209
  Receipt Date: 20120203
  Transmission Date: 20120608
  Serious: Yes (Other)
  Sender: FDA-Public Use
  Company Number: PHEH2012US003054

PATIENT
  Age: 61 Year
  Sex: Female

DRUGS (1)
  1. EXFORGE HCT [Suspect]

REACTIONS (2)
  - PNEUMOTHORAX [None]
  - COUGH [None]
